FAERS Safety Report 22300024 (Version 2)
Quarter: 2023Q2

REPORT INFORMATION
  Report Type: Spontaneous
  Country: DK (occurrence: DK)
  Receive Date: 20230509
  Receipt Date: 20230622
  Transmission Date: 20230722
  Serious: Yes (Other)
  Sender: FDA-Public Use
  Company Number: DK-PFIZER INC-202300177798

PATIENT
  Age: 41 Year
  Sex: Female

DRUGS (1)
  1. BEVACIZUMAB [Suspect]
     Active Substance: BEVACIZUMAB
     Indication: Respiratory papilloma
     Dosage: 10 MG/KG IN 3-WEEK INTERVAL
     Dates: start: 2016

REACTIONS (4)
  - Pulmonary tuberculosis [Unknown]
  - Haemoglobin decreased [Unknown]
  - General physical health deterioration [Unknown]
  - Off label use [Unknown]
